FAERS Safety Report 12521893 (Version 2)
Quarter: 2016Q3

REPORT INFORMATION
  Report Type: Spontaneous
  Country: GB (occurrence: GB)
  Receive Date: 20160701
  Receipt Date: 20160715
  Transmission Date: 20161109
  Serious: Yes (Life-Threatening, Other)
  Sender: FDA-Public Use
  Company Number: GB-BAYER-2016-126820

PATIENT
  Age: 50 Year
  Sex: Male
  Weight: 81 kg

DRUGS (1)
  1. GADOVIST 1.0 MMOL/ML SOLUTION FOR INJECTION [Suspect]
     Active Substance: GADOBUTROL
     Indication: NUCLEAR MAGNETIC RESONANCE IMAGING HEART
     Dosage: UNK, ONCE
     Route: 042
     Dates: start: 20160624, end: 20160624

REACTIONS (6)
  - Eye swelling [None]
  - Hypoaesthesia [None]
  - Anaphylactic reaction [Recovered/Resolved]
  - Lip swelling [None]
  - Paraesthesia oral [None]
  - Dysgeusia [None]

NARRATIVE: CASE EVENT DATE: 20160624
